FAERS Safety Report 9709370 (Version 1)
Quarter: 2013Q4

REPORT INFORMATION
  Report Type: Report from Study
  Country: GB (occurrence: GB)
  Receive Date: 20131126
  Receipt Date: 20131126
  Transmission Date: 20140711
  Serious: Yes (Death)
  Sender: FDA-Public Use
  Company Number: GB-AMGEN-GBRCT2013082871

PATIENT
  Age: 52 Year
  Sex: Male
  Weight: 156 kg

DRUGS (6)
  1. ETANERCEPT [Suspect]
     Indication: PRODUCT USED FOR UNKNOWN INDICATION
     Dosage: 50 MG, QWK
     Route: 065
     Dates: start: 20071018, end: 20090217
  2. NAPROXEN [Concomitant]
     Dosage: UNK
     Dates: start: 20080125
  3. FLUCLOXACILLIN [Concomitant]
     Dosage: UNK
     Dates: start: 20100629, end: 20100710
  4. TRAMADOL [Concomitant]
     Dosage: UNK
  5. MORPHINE SULFATE [Concomitant]
     Dosage: UNK
  6. ACITRETIN [Concomitant]
     Dosage: UNK
     Dates: start: 20081104

REACTIONS (1)
  - Death [Fatal]
